FAERS Safety Report 16656391 (Version 1)
Quarter: 2019Q3

REPORT INFORMATION
  Report Type: Spontaneous
  Country: FR (occurrence: FR)
  Receive Date: 20190801
  Receipt Date: 20190801
  Transmission Date: 20191004
  Serious: No
  Sender: FDA-Public Use
  Company Number: FR-PACIRA-201400085

PATIENT
  Sex: Female

DRUGS (1)
  1. DEPOCYT [Suspect]
     Active Substance: CYTARABINE
     Indication: BREAST CANCER METASTATIC
     Dosage: UNK UNK, UNK, FREQUENCY : UNK
     Route: 065

REACTIONS (1)
  - Off label use [Unknown]
